FAERS Safety Report 5483505-4 (Version None)
Quarter: 2007Q4

REPORT INFORMATION
  Report Type: 
  Country: None (occurrence: None)
  Receive Date: 20071012
  Receipt Date: 20070927
  Transmission Date: 20080405
  Serious: Yes (Hospitalization)
  Sender: FDA-Public Use
  Company Number: CA-ELI_LILLY_AND_COMPANY-CA200709006600

PATIENT
  Sex: Female

DRUGS (13)
  1. FORTEO [Suspect]
     Indication: OSTEOPOROSIS
     Dosage: 20 UG, DAILY (1/D)
     Route: 058
     Dates: start: 20070915
  2. TYLENOL ARTHRITIS [Concomitant]
  3. METOPROLOL TARTRATE [Concomitant]
  4. CELEBREX [Concomitant]
  5. CELEXA [Concomitant]
  6. CALCIUM [Concomitant]
  7. POTASSIUM CHLORIDE [Concomitant]
  8. NORVASC [Concomitant]
  9. PREMARIN [Concomitant]
  10. GLUCOSAMINE SULFATE [Concomitant]
  11. MSM [Concomitant]
  12. ASPIRIN [Concomitant]
     Dosage: 81 MG, UNK
  13. LINUM USITATISSIMUM [Concomitant]

REACTIONS (7)
  - BALANCE DISORDER [None]
  - DIZZINESS [None]
  - FALL [None]
  - FATIGUE [None]
  - MOVEMENT DISORDER [None]
  - NAUSEA [None]
  - PAIN [None]
